APPROVED DRUG PRODUCT: ORIAHNN (COPACKAGED)
Active Ingredient: ELAGOLIX SODIUM,ESTRADIOL,NORETHINDRONE ACETATE; ELAGOLIX SODIUM
Strength: EQ 300MG BASE,1MG,0.5MG; EQ 300MG BASE
Dosage Form/Route: CAPSULE;ORAL
Application: N213388 | Product #001
Applicant: ABBVIE INC
Approved: May 29, 2020 | RLD: Yes | RS: Yes | Type: RX

PATENTS:
Patent 11459305 | Expires: Nov 7, 2028
Patent 12083227 | Expires: Aug 20, 2038
Patent 10881659 | Expires: Mar 14, 2034
Patent 11045470 | Expires: Mar 14, 2034
Patent 11690845 | Expires: Aug 27, 2040
Patent 7419983 | Expires: Jul 6, 2029
Patent 11542239 | Expires: Jul 23, 2039